FAERS Safety Report 8722674 (Version 2)
Quarter: 2013Q4

REPORT INFORMATION
  Report Type: Report from Study
  Country: JP (occurrence: JP)
  Receive Date: 20120814
  Receipt Date: 20131101
  Transmission Date: 20140711
  Serious: Yes (Hospitalization)
  Sender: FDA-Public Use
  Company Number: JP-009507513-1208JPN005656

PATIENT
  Age: 66 Year
  Sex: Female
  Weight: 47 kg

DRUGS (6)
  1. PEGINTRON [Suspect]
     Indication: HEPATITIS C
     Dosage: 1.7MCG/KG/WEEK
     Route: 058
     Dates: start: 20120612, end: 20120618
  2. PEGINTRON [Suspect]
     Indication: HEPATITIS C
     Dosage: 1.27MCG/KG/WEEK
     Route: 058
     Dates: start: 20120625
  3. REBETOL [Suspect]
     Indication: HEPATITIS C
     Route: 048
     Dates: start: 20120612, end: 20120618
  4. REBETOL [Suspect]
     Indication: HEPATITIS C
     Route: 048
     Dates: start: 20120625
  5. TELAVIC [Suspect]
     Indication: HEPATITIS C
     Route: 048
     Dates: start: 20120612, end: 20120618
  6. TELAVIC [Suspect]
     Route: 048
     Dates: start: 20120625

REACTIONS (2)
  - Rash [Recovered/Resolved]
  - Platelet count decreased [Recovered/Resolved]
